FAERS Safety Report 9843792 (Version 1)
Quarter: 2013Q4

REPORT INFORMATION
  Report Type: Spontaneous
  Country: US (occurrence: None)
  Receive Date: 20131223
  Receipt Date: 20131223
  Transmission Date: 20140711
  Serious: Yes (Other)
  Sender: FDA-Public Use
  Company Number: 1000051759

PATIENT
  Age: 87 Year
  Sex: Female

DRUGS (3)
  1. LINZESS (LINACLOTIDE) (290 MICROGRAM, CAPSULES) [Suspect]
     Indication: CONSTIPATION
     Route: 048
     Dates: start: 201311
  2. LIPITOR (ATORVASTATIN CALCIUM) (ATORVASTATIN CALCIUM) [Concomitant]
  3. CELEBREX (CELECOXIB) (CELECOXIB) [Concomitant]

REACTIONS (5)
  - Drug ineffective [None]
  - Abdominal distension [None]
  - Flatulence [None]
  - Abdominal pain [None]
  - Vision blurred [None]
